FAERS Safety Report 20223301 (Version 1)
Quarter: 2021Q4

REPORT INFORMATION
  Report Type: Spontaneous
  Country: AU (occurrence: AU)
  Receive Date: 20211223
  Receipt Date: 20211223
  Transmission Date: 20220303
  Serious: Yes (Other)
  Sender: FDA-Public Use
  Company Number: AU-ABBVIE-21K-008-4210108-00

PATIENT
  Sex: Male

DRUGS (3)
  1. EPILIM [Suspect]
     Active Substance: VALPROATE SODIUM
     Indication: Depression
     Dosage: 2 TABLETS AT NIGHT
     Route: 065
  2. EPILIM [Suspect]
     Active Substance: VALPROATE SODIUM
     Indication: Bipolar disorder
  3. EPILIM [Suspect]
     Active Substance: VALPROATE SODIUM
     Indication: Anxiety

REACTIONS (1)
  - White blood cell count decreased [Recovering/Resolving]
